FAERS Safety Report 23543158 (Version 1)
Quarter: 2024Q1

REPORT INFORMATION
  Report Type: Other
  Country: US (occurrence: None)
  Receive Date: 20240220
  Receipt Date: 20240220
  Transmission Date: 20240409
  Serious: Yes (Other)
  Sender: FDA-Public Use
  Company Number: US-ROCHE-3510094

PATIENT
  Age: 88 Year
  Sex: Male

DRUGS (1)
  1. ERIVEDGE [Suspect]
     Active Substance: VISMODEGIB
     Indication: Basal cell carcinoma
     Dosage: TAKE 1 CAPSULE BY MOUTH ONCE DAILY
     Route: 048

REACTIONS (8)
  - Muscle spasms [Unknown]
  - Aspiration [Unknown]
  - Throat cancer [Unknown]
  - Dysphagia [Unknown]
  - Diarrhoea [Unknown]
  - Weight decreased [Unknown]
  - Ageusia [Unknown]
  - Speech disorder [Unknown]
